FAERS Safety Report 18293921 (Version 4)
Quarter: 2021Q1

REPORT INFORMATION
  Report Type: Report from Study
  Country: GB (occurrence: GB)
  Receive Date: 20200922
  Receipt Date: 20210319
  Transmission Date: 20210419
  Serious: Yes (Hospitalization, Other)
  Sender: FDA-Public Use
  Company Number: PHHY2019GB127569

PATIENT
  Age: 70 Year
  Sex: Female

DRUGS (28)
  1. FENTANYL. [Concomitant]
     Active Substance: FENTANYL
     Indication: PAIN
     Dosage: 12 MG/H, 72 HOURS
     Route: 062
     Dates: start: 20190402
  2. KISQALI [Suspect]
     Active Substance: RIBOCICLIB
     Dosage: UNK
     Route: 048
     Dates: start: 20181204, end: 20181211
  3. OSELTAMIVIR [Concomitant]
     Active Substance: OSELTAMIVIR
     Indication: PROPHYLAXIS
     Dosage: 75 MG, BID
     Route: 048
     Dates: start: 20190328, end: 20190329
  4. GABAPENTIN. [Concomitant]
     Active Substance: GABAPENTIN
     Indication: PAIN IN EXTREMITY
     Dosage: UNK
     Route: 065
     Dates: start: 20180523, end: 201812
  5. RANITIDINE. [Concomitant]
     Active Substance: RANITIDINE
     Indication: GASTRIC ULCER
     Dosage: 150 MG, BID
     Route: 048
     Dates: start: 20190328, end: 201904
  6. APIXABAN [Concomitant]
     Active Substance: APIXABAN
     Indication: PROPHYLAXIS
     Dosage: UNK
     Route: 065
     Dates: start: 20180926
  7. MIRTAZAPINE. [Concomitant]
     Active Substance: MIRTAZAPINE
     Indication: RESTLESSNESS
     Dosage: UNK
     Route: 065
     Dates: start: 20180629, end: 20190321
  8. KISQALI [Suspect]
     Active Substance: RIBOCICLIB
     Dosage: 400 MG
     Route: 048
     Dates: start: 20181212, end: 20190226
  9. ACETAMINOPHEN. [Concomitant]
     Active Substance: ACETAMINOPHEN
     Indication: PRODUCT USED FOR UNKNOWN INDICATION
     Dosage: UNK
     Route: 065
  10. TETRACYCLINE [Concomitant]
     Active Substance: TETRACYCLINE
     Indication: PRODUCT USED FOR UNKNOWN INDICATION
     Dosage: UNK
     Route: 065
  11. PREDNISOLON [Concomitant]
     Active Substance: PREDNISOLONE
     Indication: BACK PAIN
     Dosage: UNK
     Route: 065
     Dates: start: 20191213, end: 202001
  12. VENLAFAXIN [Concomitant]
     Active Substance: VENLAFAXINE HYDROCHLORIDE
     Indication: DEPRESSION
     Dosage: UNK
     Route: 065
     Dates: start: 20180625
  13. KISQALI [Suspect]
     Active Substance: RIBOCICLIB
     Dosage: UNK
     Route: 048
     Dates: start: 20190227, end: 20190430
  14. DALTEPARIN [Concomitant]
     Active Substance: DALTEPARIN
     Indication: PROPHYLAXIS
     Dosage: UNK
     Route: 065
     Dates: start: 20180924, end: 20180926
  15. OMEPRAZOLE. [Concomitant]
     Active Substance: OMEPRAZOLE
     Dosage: UNK
     Route: 065
     Dates: start: 201904
  16. AMITRIPTYLLINE [Concomitant]
     Active Substance: AMITRIPTYLINE
     Indication: ANXIETY
     Dosage: UNK
     Route: 065
     Dates: start: 20180625
  17. KISQALI [Suspect]
     Active Substance: RIBOCICLIB
     Indication: BREAST CANCER
     Dosage: 600 MG
     Route: 048
     Dates: start: 20180912, end: 20180923
  18. KISQALI [Suspect]
     Active Substance: RIBOCICLIB
     Dosage: 400 MG
     Route: 048
     Dates: start: 20190501, end: 20190823
  19. APIXABAN [Concomitant]
     Active Substance: APIXABAN
     Dosage: 2.5 MG, BID
     Route: 048
     Dates: start: 20190322
  20. DICLOFENAC [Concomitant]
     Active Substance: DICLOFENAC
     Indication: BACK PAIN
     Dosage: UNK
     Route: 065
     Dates: start: 20191207
  21. OMEPRAZOLE. [Concomitant]
     Active Substance: OMEPRAZOLE
     Indication: GASTRIC ULCER
     Dosage: UNK
     Route: 065
     Dates: start: 20180625, end: 20190321
  22. AMLODIPINE [Concomitant]
     Active Substance: AMLODIPINE BESYLATE
     Indication: HYPERTENSION
     Dosage: UNK
     Route: 065
     Dates: start: 20180625, end: 20180923
  23. KISQALI [Suspect]
     Active Substance: RIBOCICLIB
     Dosage: UNK
     Route: 048
     Dates: start: 20180924, end: 20181009
  24. KISQALI [Suspect]
     Active Substance: RIBOCICLIB
     Dosage: UNK
     Route: 048
     Dates: start: 20190824, end: 20190903
  25. FENTANYL. [Concomitant]
     Active Substance: FENTANYL
     Indication: PAIN IN EXTREMITY
     Dosage: UNK
     Route: 065
     Dates: start: 20191209
  26. GABAPENTIN. [Concomitant]
     Active Substance: GABAPENTIN
     Dosage: UNK
     Route: 065
     Dates: start: 20191207
  27. KISQALI [Suspect]
     Active Substance: RIBOCICLIB
     Dosage: 600 MG
     Route: 048
     Dates: start: 20181010, end: 20181203
  28. KISQALI [Suspect]
     Active Substance: RIBOCICLIB
     Dosage: 400 MG
     Route: 048
     Dates: start: 20190904, end: 20200915

REACTIONS (98)
  - Hyponatraemia [Recovered/Resolved]
  - Thrombocytopenia [Recovered/Resolved]
  - Anaemia [Recovered/Resolved]
  - Anaemia [Recovered/Resolved]
  - Blood creatinine increased [Recovered/Resolved]
  - Blood albumin decreased [Recovered/Resolved]
  - Blood alkaline phosphatase increased [Recovered/Resolved]
  - Blood alkaline phosphatase increased [Recovered/Resolved]
  - Oedema peripheral [Not Recovered/Not Resolved]
  - Skin laceration [Not Recovered/Not Resolved]
  - Glomerular filtration rate decreased [Recovered/Resolved]
  - Fluid overload [Not Recovered/Not Resolved]
  - Neutropenia [Recovered/Resolved]
  - Pulmonary hypertension [Not Recovered/Not Resolved]
  - White blood cell count decreased [Recovered/Resolved]
  - White blood cell count decreased [Recovered/Resolved]
  - White blood cell count decreased [Recovered/Resolved]
  - Alanine aminotransferase increased [Not Recovered/Not Resolved]
  - Blood albumin decreased [Recovered/Resolved]
  - Blood albumin decreased [Recovered/Resolved]
  - Blood alkaline phosphatase increased [Recovered/Resolved]
  - Blood alkaline phosphatase increased [Recovered/Resolved]
  - Wrist fracture [Not Recovered/Not Resolved]
  - Glomerular filtration rate decreased [Recovered/Resolved]
  - Glomerular filtration rate decreased [Recovered/Resolved]
  - Pain in extremity [Not Recovered/Not Resolved]
  - Malaise [Recovering/Resolving]
  - Anaemia [Recovered/Resolved]
  - Anaemia [Recovered/Resolved]
  - White blood cell count decreased [Recovered/Resolved]
  - White blood cell count decreased [Recovered/Resolved]
  - White blood cell count decreased [Recovered/Resolved]
  - Blood alkaline phosphatase increased [Recovered/Resolved]
  - Blood alkaline phosphatase increased [Not Recovered/Not Resolved]
  - Fall [Recovered/Resolved]
  - C-reactive protein increased [Not Recovered/Not Resolved]
  - Glomerular filtration rate decreased [Recovered/Resolved]
  - Glomerular filtration rate decreased [Recovered/Resolved]
  - Pleural effusion [Not Recovered/Not Resolved]
  - Pneumonia [Not Recovered/Not Resolved]
  - Liver injury [Recovered/Resolved]
  - Tricuspid valve incompetence [Not Recovered/Not Resolved]
  - Anaemia [Recovered/Resolved]
  - Blood albumin decreased [Recovered/Resolved]
  - Blood albumin decreased [Recovered/Resolved]
  - Blood albumin decreased [Recovered/Resolved]
  - Thrombocytopenia [Not Recovered/Not Resolved]
  - White blood cell count decreased [Recovered/Resolved]
  - Hypophosphataemia [Unknown]
  - Hypocalcaemia [Recovered/Resolved]
  - Hypocalcaemia [Not Recovered/Not Resolved]
  - Blood albumin decreased [Recovered/Resolved]
  - Blood albumin decreased [Recovered/Resolved]
  - Blood albumin decreased [Recovered/Resolved]
  - Blood alkaline phosphatase increased [Recovered/Resolved]
  - Blood alkaline phosphatase increased [Recovered/Resolved]
  - Nausea [Recovered/Resolved]
  - Sciatica [Not Recovered/Not Resolved]
  - Vomiting [Recovered/Resolved]
  - Blood phosphorus decreased [Recovered/Resolved]
  - Cholecystitis [Recovered/Resolved]
  - Neutropenia [Not Recovered/Not Resolved]
  - Anaemia [Recovered/Resolved]
  - Anaemia [Recovered/Resolved]
  - Alanine aminotransferase increased [Recovered/Resolved]
  - Insomnia [Not Recovered/Not Resolved]
  - Spinal osteoarthritis [Not Recovered/Not Resolved]
  - Blood albumin decreased [Recovered/Resolved]
  - Blood alkaline phosphatase increased [Recovered/Resolved]
  - Glomerular filtration rate decreased [Recovered/Resolved]
  - Glomerular filtration rate decreased [Recovered/Resolved]
  - Acute kidney injury [Recovered/Resolved]
  - Neutropenia [Recovered/Resolved]
  - Angina pectoris [Recovered/Resolved]
  - Anaemia [Recovered/Resolved]
  - Anaemia [Recovered/Resolved]
  - Alanine aminotransferase increased [Recovered/Resolved]
  - Hypocalcaemia [Recovered/Resolved]
  - Hypocalcaemia [Recovered/Resolved]
  - Confusional state [Recovered/Resolved]
  - Glomerular filtration rate decreased [Recovered/Resolved]
  - Glomerular filtration rate decreased [Not Recovered/Not Resolved]
  - Leukopenia [Not Recovered/Not Resolved]
  - Neutropenia [Recovered/Resolved]
  - Neutropenia [Recovered/Resolved]
  - Atrial fibrillation [Not Recovered/Not Resolved]
  - Pulmonary oedema [Recovered/Resolved]
  - Anaemia [Recovered/Resolved]
  - Alanine aminotransferase increased [Recovered/Resolved]
  - Constipation [Recovered/Resolved]
  - Hypocalcaemia [Recovered/Resolved]
  - Blood albumin decreased [Recovered/Resolved]
  - Dyspnoea [Not Recovered/Not Resolved]
  - Paraesthesia [Not Recovered/Not Resolved]
  - Right atrial dilatation [Not Recovered/Not Resolved]
  - Glomerular filtration rate decreased [Recovered/Resolved]
  - Glomerular filtration rate decreased [Recovered/Resolved]
  - Blood bilirubin increased [Not Recovered/Not Resolved]

NARRATIVE: CASE EVENT DATE: 20180912
